FAERS Safety Report 9597877 (Version 1)
Quarter: 2013Q4

REPORT INFORMATION
  Report Type: Spontaneous
  Country: US (occurrence: US)
  Receive Date: 20131004
  Receipt Date: 20131004
  Transmission Date: 20140711
  Serious: No
  Sender: FDA-Public Use
  Company Number: US-AMGEN-USASP2013021372

PATIENT
  Age: 52 Year
  Sex: Male
  Weight: 86.17 kg

DRUGS (5)
  1. ENBREL [Suspect]
     Indication: PRODUCT USED FOR UNKNOWN INDICATION
     Dosage: 50 MG, QWK
     Route: 058
  2. TAMSULOSIN [Concomitant]
     Dosage: 0.4 MG, UNK
  3. METFORMIN [Concomitant]
     Dosage: 850 MG, UNK
  4. VITAMIN B [Concomitant]
     Dosage: UNK
  5. KRILL OMEGA RED OIL [Concomitant]
     Dosage: 300 MG, UNK

REACTIONS (3)
  - Arthralgia [Unknown]
  - Epistaxis [Unknown]
  - Visual impairment [Unknown]
